FAERS Safety Report 7018194-0 (Version None)
Quarter: 2010Q3

REPORT INFORMATION
  Report Type: 
  Country: None (occurrence: None)
  Receive Date: 20100928
  Receipt Date: 20100920
  Transmission Date: 20110219
  Serious: Yes (Other)
  Sender: FDA-Public Use
  Company Number: DE-ROCHE-728487

PATIENT

DRUGS (6)
  1. CAPECITABINE [Suspect]
     Indication: BREAST CANCER
     Dosage: DAY 1-14 OF 21 DAY CYCLE
     Route: 065
  2. NEUPOGEN [Suspect]
     Indication: PRODUCT USED FOR UNKNOWN INDICATION
     Dosage: ON DAY 3-10
     Route: 065
  3. EPIRUBICIN [Suspect]
     Indication: BREAST CANCER
     Dosage: ON DAY 1
     Route: 065
  4. PACLITAXEL [Suspect]
     Indication: BREAST CANCER
     Dosage: FORM: INFUSION, GIVEN AS 3 HOUR INFUSION ON DAY 1 EVERY 14 DAYS
     Route: 065
  5. DARBEPOETIN ALFA [Suspect]
     Indication: PRODUCT USED FOR UNKNOWN INDICATION
     Dosage: FOR 4 WEEKS
     Route: 065
  6. DARBEPOETIN ALFA [Suspect]
     Route: 065

REACTIONS (16)
  - ARTHRALGIA [None]
  - BREAST CANCER RECURRENT [None]
  - DIARRHOEA [None]
  - FEBRILE NEUTROPENIA [None]
  - HEADACHE [None]
  - HYPERSENSITIVITY [None]
  - IMPAIRED HEALING [None]
  - LEUKOPENIA [None]
  - NAIL DISORDER [None]
  - NAUSEA [None]
  - NEUTROPENIA [None]
  - PALMAR-PLANTAR ERYTHRODYSAESTHESIA SYNDROME [None]
  - PARAESTHESIA [None]
  - STOMATITIS [None]
  - THROMBOSIS [None]
  - VOMITING [None]
